FAERS Safety Report 7867305-3 (Version None)
Quarter: 2011Q4

REPORT INFORMATION
  Report Type: 
  Country: None (occurrence: None)
  Receive Date: 20111028
  Receipt Date: 20111017
  Transmission Date: 20120403
  Serious: Yes (Death, Hospitalization)
  Sender: FDA-Public Use
  Company Number: CA-JNJFOC-20111010627

PATIENT
  Sex: Female
  Weight: 42.5 kg

DRUGS (4)
  1. PREDNISONE [Concomitant]
     Dosage: FREQUENCY: DIE
     Route: 048
  2. REMICADE [Suspect]
     Indication: COLITIS ULCERATIVE
     Route: 042
     Dates: start: 20110912
  3. REMICADE [Suspect]
     Route: 042
     Dates: start: 20110926
  4. ASACOL [Concomitant]
     Route: 048

REACTIONS (3)
  - DEATH [None]
  - HYPOTENSION [None]
  - MALAISE [None]
